FAERS Safety Report 19803472 (Version 1)
Quarter: 2021Q3

REPORT INFORMATION
  Report Type: Report from Study
  Country: IT (occurrence: IT)
  Receive Date: 20210908
  Receipt Date: 20210908
  Transmission Date: 20211014
  Serious: Yes (Hospitalization)
  Sender: FDA-Public Use
  Company Number: IT-ACCORD-237744

PATIENT
  Age: 25 Year
  Sex: Female
  Weight: 57 kg

DRUGS (3)
  1. MIRTAZAPINE. [Suspect]
     Active Substance: MIRTAZAPINE
     Route: 048
     Dates: start: 20210726, end: 20210726
  2. FLUOXETINE [Suspect]
     Active Substance: FLUOXETINE HYDROCHLORIDE
     Route: 048
     Dates: start: 20210726, end: 20210726
  3. DEPAKIN CHRONO [Suspect]
     Active Substance: VALPROIC ACID
     Dosage: STRENGTH 300 MG
     Route: 048
     Dates: start: 20210726, end: 20210726

REACTIONS (4)
  - Malaise [Recovering/Resolving]
  - Drug abuse [Unknown]
  - Presyncope [Recovering/Resolving]
  - Tremor [Recovering/Resolving]

NARRATIVE: CASE EVENT DATE: 20210726
